FAERS Safety Report 18132559 (Version 4)
Quarter: 2020Q4

REPORT INFORMATION
  Report Type: Report from Study
  Country: SA (occurrence: SA)
  Receive Date: 20200811
  Receipt Date: 20201124
  Transmission Date: 20210113
  Serious: Yes (Other)
  Sender: FDA-Public Use
  Company Number: SA-CELLTRION INC.-2020SA023602

PATIENT

DRUGS (11)
  1. REMSIMA [Suspect]
     Active Substance: INFLIXIMAB
     Dosage: 250 MG, WEEKS 0, 2, 6, AND EVERY 8 WEEKS
     Route: 042
     Dates: start: 20191230, end: 20191230
  2. PREDNISOLON [PREDNISONE] [Concomitant]
     Active Substance: PREDNISONE
     Indication: CROHN^S DISEASE
     Dosage: 40 MG (5 MG 8 TABS IN 1 D)
     Route: 048
     Dates: start: 20181208, end: 20190208
  3. MESALAZINE [Concomitant]
     Active Substance: MESALAMINE
     Indication: CROHN^S DISEASE
     Dosage: 1 GM, 2 IN 1 D
     Route: 048
     Dates: start: 20181209
  4. REMSIMA [Suspect]
     Active Substance: INFLIXIMAB
     Dosage: 270 MG, WEEKS 0, 2, 6, AND EVERY 8 WEEKS
     Route: 042
     Dates: start: 20190131, end: 20190131
  5. REMSIMA [Suspect]
     Active Substance: INFLIXIMAB
     Dosage: 250 MG, WEEKS 0, 2, 6, AND EVERY 8 WEEKS
     Route: 042
     Dates: start: 20190507, end: 20190507
  6. REMSIMA [Suspect]
     Active Substance: INFLIXIMAB
     Dosage: 300 MG, WEEKS 0, 2, 6, AND EVERY 8 WEEKS
     Route: 042
     Dates: start: 20190702, end: 20190702
  7. REMSIMA [Suspect]
     Active Substance: INFLIXIMAB
     Dosage: 300 MG, WEEKS 0, 2, 6, AND EVERY 8 WEEKS
     Route: 042
     Dates: start: 20191029, end: 20191029
  8. REMSIMA [Suspect]
     Active Substance: INFLIXIMAB
     Indication: CROHN^S DISEASE
     Dosage: 250 MG (5MG/KG), WEEKS 0, 2, 6, AND EVERY 8 WEEKS
     Route: 042
     Dates: start: 20190117, end: 20190117
  9. AZATHIOPRINE. [Concomitant]
     Active Substance: AZATHIOPRINE
     Indication: CROHN^S DISEASE
     Dosage: 50 MG (2.5 TABS ONCE DAILY)
     Route: 048
     Dates: start: 20181209
  10. REMSIMA [Suspect]
     Active Substance: INFLIXIMAB
     Dosage: 250 MG, WEEKS 0, 2, 6, AND EVERY 8 WEEKS
     Route: 042
     Dates: start: 20190307, end: 20190307
  11. REMSIMA [Suspect]
     Active Substance: INFLIXIMAB
     Dosage: 300 MG, WEEK 0, 2, 6 WEEKS, THEN EVERY 8 WEEKS
     Route: 042
     Dates: start: 20190903, end: 20190903

REACTIONS (4)
  - Leukopenia [Recovered/Resolved]
  - Neutropenia [Recovered/Resolved]
  - Product use issue [Unknown]
  - Overdose [Unknown]

NARRATIVE: CASE EVENT DATE: 20190306
